FAERS Safety Report 6893118-5 (Version None)
Quarter: 2010Q3

REPORT INFORMATION
  Report Type: 
  Country: None (occurrence: None)
  Receive Date: 20100731
  Receipt Date: 20090518
  Transmission Date: 20110219
  Serious: No
  Sender: FDA-Public Use
  Company Number: US-PFIZER INC-2009195415

PATIENT
  Age: 71 Year
  Sex: Female
  Weight: 87.075 kg

DRUGS (4)
  1. METRONIDAZOLE [Suspect]
     Indication: DIVERTICULITIS
     Dosage: 500 MG, 3X/DAY
     Route: 048
     Dates: start: 20080821, end: 20080828
  2. METRONIDAZOLE [Suspect]
     Dosage: UNK,UNK, INTRAVENOUS
     Dates: start: 20080816, end: 20080801
  3. METRONIDAZOLE [Suspect]
     Dosage: UNK
     Route: 042
     Dates: start: 20080816, end: 20080801
  4. LEVOXYL [Concomitant]

REACTIONS (5)
  - ABDOMINAL PAIN UPPER [None]
  - CHEST PAIN [None]
  - DYSGEUSIA [None]
  - NAUSEA [None]
  - PERIPHERAL COLDNESS [None]
